FAERS Safety Report 19441376 (Version 1)
Quarter: 2021Q2

REPORT INFORMATION
  Report Type: Spontaneous
  Country: GB (occurrence: GB)
  Receive Date: 20210621
  Receipt Date: 20210621
  Transmission Date: 20210717
  Serious: Yes (Other)
  Sender: FDA-Public Use
  Company Number: GB-AUROBINDO-AUR-APL-2021-025635

PATIENT
  Age: 68 Year
  Sex: Female
  Weight: 110 kg

DRUGS (4)
  1. LISINOPRIL TABLET [Suspect]
     Active Substance: LISINOPRIL
     Indication: ESSENTIAL HYPERTENSION
     Dosage: UNK
     Route: 065
     Dates: start: 20210510, end: 20210601
  2. HYDROMOL [Concomitant]
     Indication: PSORIASIS
     Dosage: AS DIRECTED
     Route: 065
     Dates: start: 20210304, end: 20210416
  3. ASTRAZENECA COVID?19 VACCINE [Concomitant]
     Active Substance: AZD-1222
     Indication: COVID-19 IMMUNISATION
     Dosage: 0.5 MILLILITER
     Route: 030
     Dates: start: 20210423
  4. INDAPAMIDE. [Concomitant]
     Active Substance: INDAPAMIDE
     Indication: PRODUCT USED FOR UNKNOWN INDICATION
     Dosage: 1.5 MILLIGRAM, ONCE A DAY EACH MORNING
     Route: 065
     Dates: start: 20210601

REACTIONS (3)
  - Pain in extremity [Recovered/Resolved]
  - Swelling face [Recovered/Resolved]
  - Peripheral swelling [Recovered/Resolved]

NARRATIVE: CASE EVENT DATE: 20210601
